FAERS Safety Report 5206870-1 (Version None)
Quarter: 2006Q4

REPORT INFORMATION
  Report Type: 
  Country: None (occurrence: None)
  Receive Date: 20061030
  Receipt Date: 20060713
  Transmission Date: 20070319
  Serious: No
  Sender: FDA-Public Use
  Company Number: 254844

PATIENT
  Age: 67 Year
  Sex: Female
  Weight: 84.8 kg

DRUGS (1)
  1. LEVEMIR [Suspect]
     Indication: INSULIN-REQUIRING TYPE II DIABETES MELLITUS
     Dosage: SEE IMAGE
     Route: 058
     Dates: start: 20060601

REACTIONS (3)
  - BLOOD GLUCOSE INCREASED [None]
  - INJECTION SITE MASS [None]
  - INJECTION SITE PRURITUS [None]
